FAERS Safety Report 9211062 (Version 1)
Quarter: 2013Q2

REPORT INFORMATION
  Report Type: Other
  Country: GB (occurrence: GB)
  Receive Date: 20130404
  Receipt Date: 20130404
  Transmission Date: 20140414
  Serious: Yes (Other)
  Sender: FDA-Public Use
  Company Number: GB-WATSON-2013-06018

PATIENT
  Age: 75 Year
  Sex: Female

DRUGS (2)
  1. DOXAZOSIN MESYLATE (UNKNOWN) [Suspect]
     Indication: HYPERTENSION
     Dosage: 1 DF, DAILY
     Route: 065
     Dates: start: 20081127, end: 20110221
  2. CO-CODAMOL [Concomitant]
     Indication: BACK PAIN
     Dosage: UNK
     Route: 065
     Dates: start: 20081205, end: 20121015

REACTIONS (2)
  - Bladder disorder [Recovered/Resolved]
  - Urinary incontinence [Recovered/Resolved]
